FAERS Safety Report 9967234 (Version 2)
Quarter: 2014Q1

REPORT INFORMATION
  Report Type: Report from Study
  Country: US (occurrence: US)
  Receive Date: 20140305
  Receipt Date: 20140305
  Transmission Date: 20141002
  Serious: No
  Sender: FDA-Public Use
  Company Number: US-ABBVIE-13P-163-1099027-00

PATIENT
  Age: 48 Year
  Sex: Female

DRUGS (4)
  1. HUMIRA [Suspect]
     Indication: CROHN^S DISEASE
     Dates: start: 20130502, end: 20130502
  2. HUMIRA [Suspect]
     Dates: start: 20130516, end: 20130516
  3. HUMIRA [Suspect]
     Dates: start: 20130530
  4. LORTAB [Concomitant]
     Indication: PROCTALGIA
     Dosage: EVERY MORNING AND EVERY NIGHT AS NEEDED

REACTIONS (2)
  - Drug ineffective [Not Recovered/Not Resolved]
  - Arthralgia [Not Recovered/Not Resolved]
